FAERS Safety Report 6771472-2 (Version None)
Quarter: 2010Q2

REPORT INFORMATION
  Report Type: 
  Country: None (occurrence: None)
  Receive Date: 20100616
  Receipt Date: 20100609
  Transmission Date: 20101027
  Serious: Yes (Hospitalization)
  Sender: FDA-Public Use
  Company Number: US-ROCHE-688137

PATIENT
  Sex: Female
  Weight: 71.8 kg

DRUGS (6)
  1. TOCILIZUMAB [Suspect]
     Indication: RHEUMATOID ARTHRITIS
     Dosage: 4 MG/KG, UNK
     Route: 042
     Dates: start: 20091215, end: 20100114
  2. RITUXIMAB [Suspect]
     Indication: RHEUMATOID ARTHRITIS
     Dosage: 1000 MG, Q6M
     Route: 042
     Dates: start: 20080115, end: 20080702
  3. RITUXIMAB [Suspect]
     Dosage: 1000 MG, Q6M
     Route: 042
     Dates: start: 20080115, end: 20080702
  4. BIAXIN [Concomitant]
  5. SYMBICORT [Concomitant]
  6. UNSPECIFIED MEDICATIONS [Concomitant]
     Indication: DRUG USE FOR UNKNOWN INDICATION

REACTIONS (1)
  - CHRONIC OBSTRUCTIVE PULMONARY DISEASE [None]
